FAERS Safety Report 8932357 (Version 1)
Quarter: 2012Q4

REPORT INFORMATION
  Report Type: 
  Country: BE (occurrence: BE)
  Receive Date: 20121128
  Receipt Date: 20121128
  Transmission Date: 20130627
  Serious: Yes (Other)
  Sender: FDA-Public Use
  Company Number: BE-JNJFOC-20121112044

PATIENT
  Sex: Female

DRUGS (2)
  1. NICORETTE MICROTAB [Suspect]
     Indication: SMOKING CESSATION THERAPY
     Route: 048
  2. NICORETTE MICROTAB [Suspect]
     Indication: SMOKING CESSATION THERAPY
     Route: 048

REACTIONS (4)
  - Nicotine dependence [Not Recovered/Not Resolved]
  - Intentional drug misuse [Unknown]
  - Wrong technique in drug usage process [Unknown]
  - Wrong technique in drug usage process [None]
